FAERS Safety Report 16106364 (Version 1)
Quarter: 2019Q2

REPORT INFORMATION
  Report Type: Spontaneous
  Country: US (occurrence: US)
  Receive Date: 20190321
  Receipt Date: 20190321
  Transmission Date: 20190711
  Serious: Yes (Other)
  Sender: FDA-Public Use
  Company Number: None

PATIENT
  Age: 80 Year
  Sex: Female
  Weight: 47.25 kg

DRUGS (1)
  1. DILTIAZEM ER 120MG CAP PRESCRIBED ONE TAB LET DAILY [Suspect]
     Active Substance: DILTIAZEM
     Indication: ESSENTIAL HYPERTENSION
     Dosage: ?          QUANTITY:30 CAPSULE(S);?
     Route: 048
     Dates: start: 20190117, end: 20190126

REACTIONS (1)
  - Ileus paralytic [None]

NARRATIVE: CASE EVENT DATE: 20190125
